FAERS Safety Report 6832186-3 (Version None)
Quarter: 2010Q3

REPORT INFORMATION
  Report Type: 
  Country: None (occurrence: None)
  Receive Date: 20100712
  Receipt Date: 20100630
  Transmission Date: 20110219
  Serious: Yes (Other)
  Sender: FDA-Public Use
  Company Number: PHHY2010JP36660

PATIENT

DRUGS (1)
  1. NEORAL [Suspect]
     Indication: INTERSTITIAL LUNG DISEASE
     Dosage: 150 MG, DAILY
     Route: 048

REACTIONS (3)
  - BETA 2 MICROGLOBULIN INCREASED [None]
  - BLOOD CREATININE INCREASED [None]
  - HAEMATURIA [None]
